FAERS Safety Report 5334723-7 (Version None)
Quarter: 2007Q2

REPORT INFORMATION
  Report Type: 
  Country: None (occurrence: None)
  Receive Date: 20070306
  Receipt Date: 20060803
  Transmission Date: 20071010
  Serious: Yes (Other)
  Sender: FDA-Public Use
  Company Number: A03200605085

PATIENT
  Age: 78 Year
  Sex: Male
  Weight: 104.31 kg

DRUGS (19)
  1. PLAVIX [Suspect]
     Indication: CAROTID ARTERY OCCLUSION
     Dosage: 75 MG QD - ORAL
     Route: 048
     Dates: start: 20060721, end: 20060723
  2. PLAVIX [Suspect]
     Indication: VASCULAR BYPASS GRAFT
     Dosage: 75 MG QD - ORAL
     Route: 048
     Dates: start: 20060721, end: 20060723
  3. TAMSULOSIN HCL [Concomitant]
  4. AMIODARONE HCL [Concomitant]
  5. POTASSIUM CHLORIDE [Concomitant]
  6. WARFARIN SODIUM [Concomitant]
  7. ATORVASTATIN [Concomitant]
  8. LEVOTHYROXINE SODIUM [Concomitant]
  9. LISINOPRIL [Concomitant]
  10. FUROSEMIDE [Concomitant]
  11. ACETYLSALICYLIC ACID SRT [Concomitant]
  12. LACTOBACILLUS ACIDOPHILUS [Concomitant]
  13. VITAMIN CAP [Concomitant]
  14. FISH OIL, HYDROGENATED [Concomitant]
  15. FIBER TABLETS [Concomitant]
  16. FOLIC ACID [Concomitant]
  17. GLUCOSAMINE CHONDROITIN [Concomitant]
  18. CALCIUM WITH VITAMIN B [Concomitant]
  19. ESTER-C [Concomitant]

REACTIONS (5)
  - CONTUSION [None]
  - HAEMORRHAGE [None]
  - RASH MACULAR [None]
  - RETINAL HAEMORRHAGE [None]
  - SKIN HAEMORRHAGE [None]
